FAERS Safety Report 6160968-2 (Version None)
Quarter: 2009Q2

REPORT INFORMATION
  Report Type: 
  Country: None (occurrence: None)
  Receive Date: 20090420
  Receipt Date: 20090409
  Transmission Date: 20091009
  Serious: Yes (Other)
  Sender: FDA-Public Use
  Company Number: BE-BAXTER-2009BH003857

PATIENT
  Age: 36 Year
  Sex: Female

DRUGS (9)
  1. EXTRANEAL [Suspect]
     Indication: PERITONEAL DIALYSIS
     Route: 033
     Dates: start: 20080701, end: 20090101
  2. PHYSIOSOL IN PLASTIC CONTAINER [Suspect]
     Indication: PERITONEAL DIALYSIS
     Route: 033
     Dates: end: 20090101
  3. HYPERTONIC SOLUTIONS [Concomitant]
  4. NOBITEN [Concomitant]
  5. CHLORHEXIDINE GLUCONATE [Concomitant]
  6. ISOPROPYL ALCOHOL COMPOUND LIQUID [Concomitant]
  7. DISTILLED WATER [Concomitant]
  8. METHYLENE BLUE [Concomitant]
  9. CETRIMIDE [Concomitant]

REACTIONS (2)
  - ABDOMINAL PAIN [None]
  - SCLEROSING ENCAPSULATING PERITONITIS [None]
